FAERS Safety Report 13665349 (Version 2)
Quarter: 2017Q2

REPORT INFORMATION
  Report Type: Spontaneous
  Country: CZ (occurrence: CZ)
  Receive Date: 20170619
  Receipt Date: 20170626
  Transmission Date: 20170830
  Serious: Yes (Other)
  Sender: FDA-Public Use
  Company Number: CZ-PFIZER INC-2017259941

PATIENT
  Sex: Male

DRUGS (5)
  1. PREDNISON [Suspect]
     Active Substance: PREDNISONE
     Dosage: 10 MG, UNK
  2. PREDNISON [Suspect]
     Active Substance: PREDNISONE
     Dosage: UNK
  3. CABAZITAXEL [Suspect]
     Active Substance: CABAZITAXEL
     Indication: PROSTATE CANCER METASTATIC
     Dosage: 25 MG/M2, EVERY 3 WEEKS (10 CYCLES)
     Route: 042
  4. DOCETAXEL. [Suspect]
     Active Substance: DOCETAXEL
     Indication: PROSTATE CANCER METASTATIC
     Dosage: 75 MG/M2, EVERY 21 DAYS
     Route: 042
  5. ENZALUTAMIDE [Suspect]
     Active Substance: ENZALUTAMIDE
     Indication: PROSTATE CANCER METASTATIC
     Dosage: 40 MG, 4X/DAY
     Route: 048

REACTIONS (6)
  - Polyneuropathy [Unknown]
  - Leukopenia [Unknown]
  - Onycholysis [Unknown]
  - Diarrhoea [Unknown]
  - Hot flush [Unknown]
  - Neutropenia [Unknown]
